FAERS Safety Report 10522791 (Version 1)
Quarter: 2014Q4

REPORT INFORMATION
  Report Type: Spontaneous
  Country: DZ (occurrence: DZ)
  Receive Date: 20141016
  Receipt Date: 20141016
  Transmission Date: 20150528
  Serious: Yes (Other)
  Sender: FDA-Public Use
  Company Number: DZ-MYLANLABS-2014M1007425

PATIENT

DRUGS (2)
  1. VALPROATE SEMISODIUM [Suspect]
     Active Substance: DIVALPROEX SODIUM
     Indication: SEIZURE
     Dosage: 20 MG/KG/DAY
     Route: 065
  2. NOVOSEVEN [Interacting]
     Active Substance: COAGULATION FACTOR VIIA RECOMBINANT HUMAN
     Indication: FACTOR VII DEFICIENCY
     Dosage: DECREASING DOSES
     Route: 065

REACTIONS (2)
  - Drug interaction [Recovered/Resolved]
  - Peritoneal haemorrhage [Recovered/Resolved]
